FAERS Safety Report 14315273 (Version 1)
Quarter: 2017Q4

REPORT INFORMATION
  Report Type: Spontaneous
  Country: FI (occurrence: FI)
  Receive Date: 20171221
  Receipt Date: 20171221
  Transmission Date: 20180321
  Serious: Yes (Other)
  Sender: FDA-Public Use
  Company Number: PHHY2017FI181705

PATIENT
  Age: 82 Year
  Sex: Male

DRUGS (2)
  1. LEUPRORELIN [Suspect]
     Active Substance: LEUPROLIDE ACETATE
     Dosage: UNK
     Route: 065
     Dates: start: 201703
  2. LEUPRORELIN [Suspect]
     Active Substance: LEUPROLIDE ACETATE
     Indication: PROSTATE CANCER
     Dosage: 11.25 MG, UNK
     Route: 065
     Dates: start: 201510

REACTIONS (8)
  - Injection site eczema [Recovering/Resolving]
  - Parakeratosis [Unknown]
  - Granuloma skin [Unknown]
  - Epidermal necrosis [Unknown]
  - Injection site granuloma [Unknown]
  - Injection site erythema [Unknown]
  - Skin mass [Unknown]
  - Wrong technique in product usage process [Unknown]

NARRATIVE: CASE EVENT DATE: 201611
